FAERS Safety Report 8914933 (Version 1)
Quarter: 2012Q4

REPORT INFORMATION
  Report Type: 
  Country: DE (occurrence: DE)
  Receive Date: 20121119
  Receipt Date: 20121119
  Transmission Date: 20130627
  Serious: Yes (Life-Threatening, Hospitalization)
  Sender: FDA-Public Use
  Company Number: DE-ROCHE-1156897

PATIENT
  Sex: Female

DRUGS (11)
  1. TORASEMIDE [Suspect]
     Indication: HYPERTENSION
     Route: 048
     Dates: start: 200411
  2. RAMIPRIL [Suspect]
     Indication: HYPERTENSION
     Route: 048
     Dates: start: 200411
  3. SPIRONOLACTONE [Suspect]
     Indication: CARDIAC FAILURE
     Route: 048
     Dates: start: 2007, end: 20080508
  4. XIPAMIDE [Suspect]
     Indication: HYPERTENSION
     Route: 048
     Dates: start: 2007, end: 20080508
  5. ACETYLSALICYLIC ACID [Concomitant]
     Indication: CORONARY ARTERY DISEASE
     Route: 065
     Dates: start: 2004
  6. ACTRAPID PENFILL [Concomitant]
     Indication: TYPE 2 DIABETES MELLITUS
     Dosage: 22 IU at noon
     Route: 065
     Dates: start: 200501
  7. BISOBETA [Concomitant]
     Indication: CORONARY ARTERY DISEASE
     Route: 065
     Dates: start: 2004
  8. DOLORMIN [Concomitant]
     Indication: PAIN
     Route: 065
  9. PLAVIX [Concomitant]
     Indication: CORONARY ARTERY DISEASE
     Route: 065
     Dates: start: 200803
  10. PRAVASTATIN [Concomitant]
     Indication: HYPERLIPIDAEMIA
     Route: 065
     Dates: start: 2004
  11. PROTAPHAN HUMAN [Concomitant]
     Route: 065
     Dates: start: 200801

REACTIONS (1)
  - Renal failure acute [Recovered/Resolved]
